FAERS Safety Report 9139971 (Version 4)
Quarter: 2013Q4

REPORT INFORMATION
  Report Type: Spontaneous
  Country: US (occurrence: US)
  Receive Date: 20130305
  Receipt Date: 20131025
  Transmission Date: 20140711
  Serious: Yes (Hospitalization)
  Sender: FDA-Public Use
  Company Number: US-PFIZER INC-2013075040

PATIENT
  Age: 59 Year
  Sex: Female

DRUGS (1)
  1. PANTOPRAZOLE [Suspect]
     Dosage: 40 MG, 1X/DAY
     Dates: start: 20130225

REACTIONS (6)
  - Anaphylactic shock [Unknown]
  - Malaise [Recovered/Resolved]
  - Erythema [Recovered/Resolved]
  - Feeling hot [Recovered/Resolved]
  - Dyspnoea [Recovered/Resolved]
  - Feeling abnormal [Recovered/Resolved]
